FAERS Safety Report 4945922-8 (Version None)
Quarter: 2006Q1

REPORT INFORMATION
  Report Type: 
  Country: None (occurrence: None)
  Receive Date: 20060316
  Receipt Date: 20060216
  Transmission Date: 20060701
  Serious: Yes (Other)
  Sender: FDA-Public Use
  Company Number: US-BOEHRINGER INGELHEIM PHARMACEUTICALS, INC.-2006-BP-01884BP

PATIENT
  Age: 33 Year
  Sex: Male
  Weight: 86.8 kg

DRUGS (3)
  1. MOBIC [Suspect]
     Indication: PHYSIOTHERAPY
     Route: 048
     Dates: start: 20060215
  2. CARBATROL [Concomitant]
  3. ZONAGRAM [Concomitant]

REACTIONS (1)
  - COMPLEX PARTIAL SEIZURES [None]
